FAERS Safety Report 17659585 (Version 2)
Quarter: 2020Q2

REPORT INFORMATION
  Report Type: Spontaneous
  Country: JP (occurrence: JP)
  Receive Date: 20200413
  Receipt Date: 20200417
  Transmission Date: 20200713
  Serious: Yes (Hospitalization, Other)
  Sender: FDA-Public Use
  Company Number: JP-ROCHE-2580579

PATIENT
  Age: 5 Decade
  Sex: Female

DRUGS (2)
  1. PREDNISOLONE. [Concomitant]
     Active Substance: PREDNISOLONE
     Indication: CASTLEMAN^S DISEASE
     Route: 065
  2. ACTEMRA [Suspect]
     Active Substance: TOCILIZUMAB
     Indication: CASTLEMAN^S DISEASE
     Route: 065

REACTIONS (7)
  - Intentional product use issue [Unknown]
  - Septic shock [Unknown]
  - Gastroenteritis aeromonas [Unknown]
  - Off label use [Unknown]
  - Blood blister [Unknown]
  - Ileus paralytic [Unknown]
  - Aeromonas infection [Unknown]
